FAERS Safety Report 7429078-8 (Version None)
Quarter: 2011Q2

REPORT INFORMATION
  Report Type: 
  Country: None (occurrence: None)
  Receive Date: 20110421
  Receipt Date: 20110408
  Transmission Date: 20111010
  Serious: Yes (Hospitalization, Other)
  Sender: FDA-Public Use
  Company Number: US-BAYER-2011-031015

PATIENT
  Age: 61 Year
  Sex: Male

DRUGS (2)
  1. NEXAVAR [Suspect]
     Dosage: 2 PILLS IN AM 1 PILL IN PM
     Route: 048
     Dates: start: 20110321
  2. NEXAVAR [Suspect]
     Indication: HEPATIC NEOPLASM MALIGNANT
     Dosage: 2 PILLS IN AM 1 PILL IN PM
     Route: 048
     Dates: start: 20110201, end: 20110320

REACTIONS (7)
  - CONFUSIONAL STATE [None]
  - AMMONIA INCREASED [None]
  - HYPERTENSION [None]
  - MUSCLE SPASMS [None]
  - ATRIAL FIBRILLATION [None]
  - HEPATIC ENCEPHALOPATHY [None]
  - FATIGUE [None]
